FAERS Safety Report 7583203-7 (Version None)
Quarter: 2011Q2

REPORT INFORMATION
  Report Type: 
  Country: None (occurrence: None)
  Receive Date: 20110630
  Receipt Date: 20110616
  Transmission Date: 20111010
  Serious: Yes (Hospitalization)
  Sender: FDA-Public Use
  Company Number: TR-SHIRE-SPV1-2010-01656

PATIENT
  Age: 20 Year
  Sex: Male

DRUGS (2)
  1. ENALAPRIL MALEATE [Concomitant]
     Indication: PRODUCT USED FOR UNKNOWN INDICATION
     Dosage: 1?5 MG/DAY
     Route: 048
  2. IDURSULFASE [Suspect]
     Dosage: 0.5 MG/KG, 1X/WEEK
     Route: 042
     Dates: start: 20090101, end: 20100927

REACTIONS (2)
  - IDIOPATHIC THROMBOCYTOPENIC PURPURA [None]
  - INFUSION RELATED REACTION [None]
